FAERS Safety Report 8477556-5 (Version None)
Quarter: 2012Q2

REPORT INFORMATION
  Report Type: 
  Country: None (occurrence: None)
  Receive Date: 20120629
  Receipt Date: 20120618
  Transmission Date: 20120825
  Serious: Yes (Hospitalization, Other)
  Sender: FDA-Public Use
  Company Number: PHHY2012DE046056

PATIENT
  Sex: Male
  Weight: 60 kg

DRUGS (4)
  1. LEUPROLIDE ACETATE [Concomitant]
     Indication: PROSTATE CANCER
     Dosage: 3.75 MG, UNK
     Route: 058
     Dates: start: 20110314, end: 20120308
  2. MARCUMAR [Concomitant]
     Dosage: UNK UKN, UNK
     Dates: start: 20080101
  3. ACETAMINOPHEN [Concomitant]
     Dosage: 2000 MG, UNK
  4. ZOLEDRONOC ACID [Suspect]
     Indication: METASTASES TO BONE
     Dosage: 4 MG, EVERY 4 WEEKS
     Route: 042
     Dates: start: 20110404

REACTIONS (4)
  - CEREBROVASCULAR ACCIDENT [None]
  - ANGIOPATHY [None]
  - TRANSIENT ISCHAEMIC ATTACK [None]
  - GENERAL PHYSICAL HEALTH DETERIORATION [None]
